FAERS Safety Report 9470153 (Version 4)
Quarter: 2015Q2

REPORT INFORMATION
  Report Type: Spontaneous
  Country: US (occurrence: US)
  Receive Date: 20130822
  Receipt Date: 20150626
  Transmission Date: 20150821
  Serious: Yes (Hospitalization, Other)
  Sender: FDA-Public Use
  Company Number: US-UCBSA-095377

PATIENT
  Age: 55 Year
  Sex: Female
  Weight: 97.9 kg

DRUGS (9)
  1. METFORMIN [Concomitant]
     Active Substance: METFORMIN HYDROCHLORIDE
     Indication: DIABETES MELLITUS
     Dosage: 1000 MG, 2X/DAY (BID)
     Route: 048
  2. LISINOPRIL. [Concomitant]
     Active Substance: LISINOPRIL
     Dosage: 20 MG, ONCE DAILY (QD)
     Route: 048
  3. ZIAC [Concomitant]
     Active Substance: BISOPROLOL FUMARATE\HYDROCHLOROTHIAZIDE
     Dosage: 10-6.25 MG, ONCE DAILY (QD)
     Route: 048
  4. XANAX [Concomitant]
     Active Substance: ALPRAZOLAM
     Dosage: 1 MG, AS NEEDED (PRN) (UP TO 4 TIMES A DAY)
     Route: 048
  5. FLUOXETINE [Concomitant]
     Active Substance: FLUOXETINE\FLUOXETINE HYDROCHLORIDE
     Dosage: 10 MG, ONCE DAILY (QD)
     Route: 048
  6. NARCOZEP [Concomitant]
     Dosage: 10 MG, AS NEEDED (PRN)
     Route: 048
  7. LOVASTATIN. [Concomitant]
     Active Substance: LOVASTATIN
     Dosage: 20 MG, ONCE DAILY (QD)
     Route: 048
  8. KEPPRA XR [Suspect]
     Active Substance: LEVETIRACETAM
     Indication: SEIZURE
     Dosage: STRENGTH: 500 MG 4/DAY - TWO TABLETS IN THE AM AND TWO TABLETS IN THE PM
     Route: 048
  9. KEPPRA XR [Suspect]
     Active Substance: LEVETIRACETAM
     Indication: EPILEPSY
     Dosage: 750MG 4 DAY
     Route: 048

REACTIONS (7)
  - Generalised tonic-clonic seizure [Not Recovered/Not Resolved]
  - Amnesia [Not Recovered/Not Resolved]
  - Fall [Unknown]
  - Arthralgia [Not Recovered/Not Resolved]
  - Inappropriate schedule of drug administration [Unknown]
  - Humerus fracture [Unknown]
  - Seizure [Unknown]

NARRATIVE: CASE EVENT DATE: 201307
